FAERS Safety Report 22115409 (Version 1)
Quarter: 2023Q1

REPORT INFORMATION
  Report Type: Other
  Country: None (occurrence: US)
  Receive Date: 20230320
  Receipt Date: 20230320
  Transmission Date: 20230417
  Serious: Yes (Hospitalization, Other)
  Sender: FDA-Public Use
  Company Number: US-Breckenridge Pharmaceutical, Inc.-2139274

PATIENT
  Age: 79 Year
  Sex: Male

DRUGS (1)
  1. APIXABAN [Suspect]
     Active Substance: APIXABAN
     Indication: Deep vein thrombosis
     Route: 048

REACTIONS (3)
  - Hyphaema [Recovering/Resolving]
  - Vitreous haemorrhage [Recovering/Resolving]
  - Angle closure glaucoma [Recovering/Resolving]
